FAERS Safety Report 23356532 (Version 2)
Quarter: 2024Q3

REPORT INFORMATION
  Report Type: Spontaneous
  Country: FR (occurrence: FR)
  Receive Date: 20240102
  Receipt Date: 20240918
  Transmission Date: 20241017
  Serious: Yes (Life-Threatening)
  Sender: BAUSCH AND LOMB
  Company Number: None

PATIENT
  Age: 67 Year
  Sex: Female

DRUGS (6)
  1. DEXAMETHASONE [Suspect]
     Active Substance: DEXAMETHASONE
     Indication: Anaesthesia
     Dosage: UNKNOWN DOSE, INTRAVENOUS
     Route: 042
     Dates: start: 20231127, end: 20231127
  2. PROPOFOL [Suspect]
     Active Substance: PROPOFOL
     Indication: Anaesthesia
     Dosage: UNKNOWN DOSE
     Route: 042
     Dates: start: 20231127, end: 20231127
  3. KETAMINE [Suspect]
     Active Substance: KETAMINE
     Indication: Anaesthesia
     Dosage: UNKNOWN DOSE INTRAVENOUS
     Route: 042
     Dates: start: 20231127, end: 20231127
  4. ROCURONIUM BROMIDE [Suspect]
     Active Substance: ROCURONIUM BROMIDE
     Indication: Anaesthesia
     Dosage: UNKNOWN DOSE
     Route: 042
     Dates: start: 20231127, end: 20231127
  5. SUFENTANIL [Suspect]
     Active Substance: SUFENTANIL
     Indication: Anaesthesia
     Route: 042
     Dates: start: 20231127, end: 20231127
  6. METRONIDAZOLE [Suspect]
     Active Substance: METRONIDAZOLE
     Indication: Anaesthesia
     Dosage: UNKNOWN DOSE, INTRAVENOUS
     Route: 042
     Dates: start: 20231127, end: 20231127

REACTIONS (1)
  - Anaphylactic shock [Recovered/Resolved]

NARRATIVE: CASE EVENT DATE: 20231127
